FAERS Safety Report 16858010 (Version 2)
Quarter: 2019Q4

REPORT INFORMATION
  Report Type: Report from Study
  Country: US (occurrence: US)
  Receive Date: 20190926
  Receipt Date: 20191003
  Transmission Date: 20200122
  Serious: Yes (Hospitalization, Other)
  Sender: FDA-Public Use
  Company Number: US-ALEXION PHARMACEUTICALS INC.-A201914356

PATIENT
  Sex: Male

DRUGS (1)
  1. SOLIRIS [Suspect]
     Active Substance: ECULIZUMAB
     Indication: MYASTHENIA GRAVIS
     Route: 065

REACTIONS (6)
  - Fall [Unknown]
  - Bilevel positive airway pressure [Unknown]
  - Oxygen therapy [Unknown]
  - Gastrointestinal tube insertion [Unknown]
  - Dialysis [Unknown]
  - Femur fracture [Unknown]
